FAERS Safety Report 6215847-9 (Version None)
Quarter: 2009Q2

REPORT INFORMATION
  Report Type: 
  Country: None (occurrence: None)
  Receive Date: 20090605
  Receipt Date: 20090603
  Transmission Date: 20091009
  Serious: Yes (Other)
  Sender: FDA-Public Use
  Company Number: US-RB-016414-09

PATIENT
  Sex: Female
  Weight: 76.5 kg

DRUGS (13)
  1. SUBOXONE [Suspect]
     Route: 060
     Dates: start: 20090530, end: 20090530
  2. SUBOXONE [Suspect]
     Route: 060
     Dates: start: 20090529, end: 20090529
  3. SUBOXONE [Suspect]
     Route: 060
     Dates: start: 20090531, end: 20090601
  4. KLONOPIN [Concomitant]
     Indication: ANXIETY DISORDER
     Route: 065
  5. NORVASC [Concomitant]
     Indication: HYPERTENSION
     Route: 065
  6. PRILOSEC [Concomitant]
     Route: 065
  7. SYNTHROID [Concomitant]
     Indication: HYPOTHYROIDISM
     Route: 065
  8. TOPROL-XL [Concomitant]
     Indication: HYPERTENSION
  9. TOPROL-XL [Concomitant]
     Route: 065
  10. WELLBUTRIN [Concomitant]
     Indication: DEPRESSION
     Route: 065
  11. BUSPAR [Concomitant]
     Indication: ANXIETY DISORDER
     Route: 065
  12. PAXIL [Concomitant]
     Indication: ANXIETY DISORDER
     Route: 065
  13. ABILIFY [Concomitant]
     Indication: BIPOLAR DISORDER
     Route: 065

REACTIONS (3)
  - ABDOMINAL PAIN UPPER [None]
  - HALLUCINATION, AUDITORY [None]
  - HALLUCINATION, VISUAL [None]
